FAERS Safety Report 4447087-8 (Version None)
Quarter: 2004Q3

REPORT INFORMATION
  Report Type: 
  Country: None (occurrence: None)
  Receive Date: 20040813
  Receipt Date: 20040513
  Transmission Date: 20050211
  Serious: No
  Sender: FDA-Public Use
  Company Number: S04-USA-03581-01

PATIENT
  Age: 67 Year
  Sex: Male

DRUGS (5)
  1. NAMENDA [Suspect]
     Indication: DEMENTIA ALZHEIMER'S TYPE
     Dosage: 5 MG QD PO
     Route: 048
     Dates: start: 20040511
  2. ACEON [Concomitant]
  3. ATACAND [Concomitant]
  4. PRAVACHOL [Concomitant]
  5. PLAVIX [Concomitant]

REACTIONS (3)
  - DRY MOUTH [None]
  - MICTURITION URGENCY [None]
  - SOMNOLENCE [None]
